FAERS Safety Report 4557195-9 (Version None)
Quarter: 2005Q1

REPORT INFORMATION
  Report Type: 
  Country: None (occurrence: None)
  Receive Date: 20050118
  Receipt Date: 20050105
  Transmission Date: 20050727
  Serious: Yes (Other)
  Sender: FDA-Public Use
  Company Number: 2004VX000911

PATIENT
  Age: 50 Year
  Sex: Female

DRUGS (9)
  1. FLUOROURACIL [Suspect]
     Indication: GASTRIC CANCER
     Dosage: SEE IMAGE
     Route: 042
     Dates: start: 20040812, end: 20040819
  2. FLUOROURACIL [Suspect]
     Indication: GASTRIC CANCER
     Dosage: SEE IMAGE
     Route: 042
     Dates: start: 20041025, end: 20041025
  3. METHOTREXATE [Suspect]
     Indication: GASTRIC CANCER
     Dosage: SEE IMAGE
     Route: 042
     Dates: start: 20040812, end: 20040819
  4. METHOTREXATE [Suspect]
     Indication: GASTRIC CANCER
     Dosage: SEE IMAGE
     Route: 042
     Dates: start: 20041025, end: 20041025
  5. TAXOL [Concomitant]
  6. UNASYN [Concomitant]
  7. NEO NICHIPHAGEN C [Concomitant]
  8. URSO 250 [Concomitant]
  9. ULCERMIN [Concomitant]

REACTIONS (8)
  - ALVEOLITIS ALLERGIC [None]
  - BILIARY TRACT INFECTION [None]
  - BONE MARROW DEPRESSION [None]
  - GASTRIC CANCER [None]
  - LIVER DISORDER [None]
  - LYMPHOCYTE STIMULATION TEST POSITIVE [None]
  - MALIGNANT NEOPLASM PROGRESSION [None]
  - PNEUMONIA BACTERIAL [None]
